FAERS Safety Report 9886922 (Version 1)
Quarter: 2014Q1

REPORT INFORMATION
  Report Type: Spontaneous
  Country: US (occurrence: US)
  Receive Date: 20140211
  Receipt Date: 20140211
  Transmission Date: 20141002
  Serious: Yes (Other)
  Sender: FDA-Public Use
  Company Number: US-ROCHE-1345993

PATIENT
  Age: 13 Year
  Sex: Female

DRUGS (1)
  1. XOLAIR [Suspect]
     Indication: ASTHMA
     Route: 065

REACTIONS (5)
  - Wheezing [Unknown]
  - Liver function test abnormal [Unknown]
  - Eosinophilia [Unknown]
  - Dizziness [Unknown]
  - Vision blurred [Recovered/Resolved]
